FAERS Safety Report 9831103 (Version 2)
Quarter: 2014Q1

REPORT INFORMATION
  Report Type: Report from Study
  Country: JP (occurrence: JP)
  Receive Date: 20140120
  Receipt Date: 20140120
  Transmission Date: 20141002
  Serious: Yes (Death)
  Sender: FDA-Public Use
  Company Number: JP-ROCHE-1232228

PATIENT
  Age: 70 Year
  Sex: Male
  Weight: 60 kg

DRUGS (4)
  1. ALTEPLASE [Suspect]
     Indication: EMBOLIC STROKE
     Route: 042
     Dates: start: 20130206, end: 20130206
  2. RADICUT [Concomitant]
     Indication: EMBOLIC STROKE
     Route: 041
     Dates: start: 20130206, end: 20130212
  3. RADICUT [Concomitant]
     Route: 041
     Dates: start: 20130207, end: 20130212
  4. GLYCEOL [Concomitant]
     Route: 065
     Dates: start: 20130208, end: 20130208

REACTIONS (2)
  - Haemorrhagic infarction [Fatal]
  - Cerebral infarction [Fatal]
